FAERS Safety Report 14496638 (Version 1)
Quarter: 2018Q1

REPORT INFORMATION
  Report Type: Spontaneous
  Country: DE (occurrence: DE)
  Receive Date: 20180207
  Receipt Date: 20180207
  Transmission Date: 20180509
  Serious: Yes (Other)
  Sender: FDA-Public Use
  Company Number: PHHY2017DE200413

PATIENT
  Age: 52 Year
  Sex: Female
  Weight: 78 kg

DRUGS (3)
  1. IBU-TAB [Suspect]
     Active Substance: IBUPROFEN
     Indication: PAIN
     Route: 065
  2. LETROZOLE. [Suspect]
     Active Substance: LETROZOLE
     Indication: BREAST CANCER
     Dosage: 2.5 MG, QD
     Route: 065
     Dates: start: 201706
  3. PNEUMOVAX 23 [Suspect]
     Active Substance: PNEUMOCOCCAL VACCINE, POLYVALENT 23
     Indication: PROPHYLAXIS
     Route: 030

REACTIONS (4)
  - Lymphangitis [Unknown]
  - Pain in extremity [Recovered/Resolved]
  - Pain [Recovered/Resolved]
  - Erythema [Unknown]

NARRATIVE: CASE EVENT DATE: 20171128
